FAERS Safety Report 16289061 (Version 1)
Quarter: 2019Q2

REPORT INFORMATION
  Report Type: Other
  Country: CH (occurrence: CH)
  Receive Date: 20190509
  Receipt Date: 20190509
  Transmission Date: 20190711
  Serious: Yes (Other)
  Sender: FDA-Public Use
  Company Number: CH-ALLIED PHARMA, LLC-2066828

PATIENT
  Age: 53 Year
  Sex: Female

DRUGS (3)
  1. CETIRIZINE HYDROCHLORIDE ORAL SOLUTION, 1 MG/ML [Suspect]
     Active Substance: CETIRIZINE HYDROCHLORIDE
     Indication: PRODUCT USED FOR UNKNOWN INDICATION
  2. HYDROXYZINE [Suspect]
     Active Substance: HYDROXYZINE HYDROCHLORIDE
  3. FEXOFENADINE [Suspect]
     Active Substance: FEXOFENADINE\FEXOFENADINE HYDROCHLORIDE

REACTIONS (3)
  - Syncope [Unknown]
  - Angioedema [Unknown]
  - Urticaria [Unknown]
